FAERS Safety Report 8881075 (Version 1)
Quarter: 2012Q4

REPORT INFORMATION
  Report Type: Report from Study
  Country: US (occurrence: US)
  Receive Date: 20121101
  Receipt Date: 20121101
  Transmission Date: 20130627
  Serious: Yes (Other)
  Sender: FDA-Public Use
  Company Number: US-JNJFOC-20121015152

PATIENT
  Age: 79 Year
  Sex: Female
  Weight: 92.53 kg

DRUGS (3)
  1. XARELTO [Suspect]
     Indication: PRODUCT USED FOR UNKNOWN INDICATION
     Route: 048
  2. CARDIAC MEDICATION NOS [Concomitant]
     Indication: CARDIAC DISORDER
  3. HYPERTENSION MEDICATION NOS [Concomitant]
     Indication: HYPERTENSION

REACTIONS (3)
  - Mouth haemorrhage [Not Recovered/Not Resolved]
  - Haemorrhage [Not Recovered/Not Resolved]
  - Asthenia [Not Recovered/Not Resolved]
